FAERS Safety Report 24270710 (Version 1)
Quarter: 2024Q3

REPORT INFORMATION
  Report Type: Other
  Country: ES (occurrence: ES)
  Receive Date: 20240831
  Receipt Date: 20240831
  Transmission Date: 20241016
  Serious: Yes (Hospitalization)
  Sender: ZYDUS PHARM
  Company Number: None

PATIENT

DRUGS (6)
  1. OLANZAPINE [Interacting]
     Active Substance: OLANZAPINE
     Indication: Product used for unknown indication
     Dosage: 15 MILLIGRAM 1 TOTAL
     Route: 048
     Dates: start: 20240703, end: 20240703
  2. PAROXETINE [Interacting]
     Active Substance: PAROXETINE
     Indication: Product used for unknown indication
     Dosage: 180 MILLIGRAM 1 TOTAL
     Route: 048
     Dates: start: 20240703, end: 20240703
  3. PREGABALIN [Interacting]
     Active Substance: PREGABALIN
     Indication: Product used for unknown indication
     Dosage: 524 MILLIGRAM 1 TOTAL
     Route: 048
     Dates: start: 20240703, end: 20240703
  4. TOPIRAMATE [Interacting]
     Active Substance: TOPIRAMATE
     Indication: Product used for unknown indication
     Dosage: 750 MILLIGRAM 1 TOTAL
     Route: 048
     Dates: start: 20240703, end: 20240703
  5. TAPENTADOL [Interacting]
     Active Substance: TAPENTADOL
     Indication: Product used for unknown indication
     Dosage: 400 MILLIGRAM 1 TOTAL
     Route: 048
     Dates: start: 20240703, end: 20240703
  6. CLONAZEPAM [Interacting]
     Active Substance: CLONAZEPAM
     Indication: Product used for unknown indication
     Dosage: 5.5 MILLIGRAM 1 TOTAL
     Route: 048
     Dates: start: 20240703, end: 20240703

REACTIONS (3)
  - Trismus [Recovered/Resolved]
  - Depressed level of consciousness [Recovered/Resolved]
  - Intentional overdose [Recovered/Resolved]

NARRATIVE: CASE EVENT DATE: 20240703
